FAERS Safety Report 5859807-6 (Version None)
Quarter: 2008Q3

REPORT INFORMATION
  Report Type: 
  Country: None (occurrence: None)
  Receive Date: 20080827
  Receipt Date: 20080820
  Transmission Date: 20090109
  Serious: Yes (Hospitalization, Disabling)
  Sender: FDA-Public Use
  Company Number: US-MERCK-0805USA04872

PATIENT
  Age: 44 Year
  Sex: Female

DRUGS (2)
  1. FOSAMAX [Suspect]
     Indication: OSTEOPOROSIS
     Route: 048
     Dates: start: 20030917, end: 20050401
  2. FOSAMAX PLUS D [Suspect]
     Indication: OSTEOPOROSIS
     Route: 048
     Dates: start: 20050401, end: 20080301

REACTIONS (9)
  - ARTHROPATHY [None]
  - BLOOD CHOLESTEROL INCREASED [None]
  - BREAST MASS [None]
  - JAW DISORDER [None]
  - LOOSE TOOTH [None]
  - MASTICATION DISORDER [None]
  - ORAL PAIN [None]
  - OSTEONECROSIS [None]
  - ROTATOR CUFF SYNDROME [None]
